FAERS Safety Report 16192020 (Version 1)
Quarter: 2019Q2

REPORT INFORMATION
  Report Type: Report from Study
  Country: IT (occurrence: IT)
  Receive Date: 20190412
  Receipt Date: 20190412
  Transmission Date: 20190711
  Serious: Yes (Hospitalization)
  Sender: FDA-Public Use
  Company Number: IT-MYLANLABS-2019M1030878

PATIENT
  Age: 81 Year
  Sex: Female

DRUGS (8)
  1. SIMVASTATIN. [Interacting]
     Active Substance: SIMVASTATIN
     Indication: HYPERCHOLESTEROLAEMIA
     Dosage: 20 MILLIGRAM, QD
     Route: 048
  2. SILYMARIN [Concomitant]
     Active Substance: DIETARY SUPPLEMENT\HERBALS\MILK THISTLE
     Dosage: 280 MILLIGRAM
  3. ITRACONAZOLE. [Suspect]
     Active Substance: ITRACONAZOLE
     Indication: ASPERGILLUS INFECTION
     Dosage: 200 MILLIGRAM, QD
  4. COLECALCIFEROL [Concomitant]
     Active Substance: CHOLECALCIFEROL
     Dosage: 25000 KILO-INTERNATIONAL UNIT
  5. OMEPRAZOLE. [Concomitant]
     Active Substance: OMEPRAZOLE
     Dosage: 20 MILLIGRAM
  6. BUDESONIDE W/FORMOTEROL FUMARATE [Concomitant]
     Active Substance: BUDESONIDE\FORMOTEROL FUMARATE
     Dosage: 164.5 MICROGRAM
  7. FUROSEMIDE                         /00032602/ [Concomitant]
     Active Substance: FUROSEMIDE
     Dosage: 25 MILLIGRAM
  8. CITALOPRAM [Concomitant]
     Active Substance: CITALOPRAM HYDROBROMIDE
     Dosage: 5 DROP [DRP] (DROP (1/12 MILLILITRE))

REACTIONS (4)
  - Transaminases increased [Recovering/Resolving]
  - Rhabdomyolysis [Recovering/Resolving]
  - Labelled drug-drug interaction medication error [Recovering/Resolving]
  - Blood lactate dehydrogenase increased [Recovering/Resolving]

NARRATIVE: CASE EVENT DATE: 20180918
